FAERS Safety Report 9823283 (Version 1)
Quarter: 2014Q1

REPORT INFORMATION
  Report Type: Spontaneous
  Country: GB (occurrence: GB)
  Receive Date: 20140116
  Receipt Date: 20140116
  Transmission Date: 20141002
  Serious: Yes (Other)
  Sender: FDA-Public Use
  Company Number: PHHY2014GB004317

PATIENT
  Sex: Female

DRUGS (5)
  1. CICLOSPORIN [Suspect]
     Dosage: MATERNAL DOSE: 2 MG/KG
     Route: 064
  2. PENTASA [Suspect]
     Dosage: MATERNAL DOSE: 1 G, BID
     Route: 064
  3. PREDNISOLONE [Suspect]
     Dosage: MATERNAL DOSE: 40-60 MG, DAILY
     Route: 064
  4. PREDNISOLONE [Suspect]
     Dosage: MATERNAL DOSE: 2.5 MG, DAILY
     Route: 064
  5. AZATHIOPRINE [Suspect]
     Dosage: MATERNAL DOSE: 150 MG, DAILY
     Route: 064

REACTIONS (3)
  - Low birth weight baby [Unknown]
  - Premature baby [Unknown]
  - Foetal exposure during pregnancy [Unknown]
